FAERS Safety Report 21937233 (Version 1)
Quarter: 2023Q1

REPORT INFORMATION
  Report Type: Spontaneous
  Country: US (occurrence: US)
  Receive Date: 20230201
  Receipt Date: 20230201
  Transmission Date: 20230418
  Serious: No
  Sender: FDA-Public Use
  Company Number: US-EPIZYME, INC-2022USEPIZYME0798

PATIENT

DRUGS (4)
  1. TAZVERIK [Suspect]
     Active Substance: TAZEMETOSTAT HYDROBROMIDE
     Indication: Follicular lymphoma
     Dosage: 800 MG, BID
     Route: 048
     Dates: start: 20210922
  2. LISINOPRIL [Concomitant]
     Active Substance: LISINOPRIL
     Indication: Product used for unknown indication
  3. PINDOLOL [Concomitant]
     Active Substance: PINDOLOL
     Indication: Product used for unknown indication
  4. SIMVASTATIN [Concomitant]
     Active Substance: SIMVASTATIN
     Indication: Product used for unknown indication

REACTIONS (3)
  - Influenza like illness [Unknown]
  - Sinusitis [Unknown]
  - Oropharyngeal pain [Unknown]
